FAERS Safety Report 18295701 (Version 1)
Quarter: 2020Q3

REPORT INFORMATION
  Report Type: Spontaneous
  Country: US (occurrence: US)
  Receive Date: 20200922
  Receipt Date: 20200922
  Transmission Date: 20201103
  Serious: No
  Sender: FDA-Public Use
  Company Number: US-AMARIN PHARMA, INC.-2020AMR000317

PATIENT
  Age: 78 Year
  Sex: Male
  Weight: 93.07 kg

DRUGS (10)
  1. LOSARTIN [Concomitant]
     Active Substance: LOSARTAN
     Indication: RENAL DISORDER PROPHYLAXIS
     Route: 048
  2. LEVOTHYROXINE. [Concomitant]
     Active Substance: LEVOTHYROXINE
     Indication: THYROID DISORDER
     Route: 048
  3. METFORMIN [Concomitant]
     Active Substance: METFORMIN HYDROCHLORIDE
     Indication: PRODUCT USED FOR UNKNOWN INDICATION
     Route: 048
  4. FENOFIBRATE. [Concomitant]
     Active Substance: FENOFIBRATE
     Indication: PRODUCT USED FOR UNKNOWN INDICATION
     Route: 048
  5. CARVIDOL [Concomitant]
     Indication: CARDIAC DISORDER
     Route: 048
     Dates: start: 2019
  6. ASPRIN [Concomitant]
     Active Substance: ASPIRIN
     Indication: ARTHRITIS
     Route: 048
  7. CENTRUM SILVER [Concomitant]
     Active Substance: MINERALS\VITAMINS
     Indication: PRODUCT USED FOR UNKNOWN INDICATION
     Route: 048
  8. VASCEPA [Suspect]
     Active Substance: ICOSAPENT ETHYL
     Indication: BLOOD TRIGLYCERIDES INCREASED
     Route: 048
     Dates: start: 2018
  9. LANTUS [Concomitant]
     Active Substance: INSULIN GLARGINE
     Indication: TYPE 2 DIABETES MELLITUS
  10. ATORVASTATIN [Concomitant]
     Active Substance: ATORVASTATIN
     Indication: BLOOD CHOLESTEROL ABNORMAL
     Route: 048

REACTIONS (4)
  - Product odour abnormal [Unknown]
  - Product adhesion issue [Unknown]
  - Hypertension [Recovered/Resolved]
  - Diarrhoea [Recovered/Resolved]

NARRATIVE: CASE EVENT DATE: 202004
